FAERS Safety Report 5103259-0 (Version None)
Quarter: 2006Q3

REPORT INFORMATION
  Report Type: 
  Country: None (occurrence: None)
  Receive Date: 20060913
  Receipt Date: 20060828
  Transmission Date: 20061208
  Serious: Yes (Hospitalization, Other)
  Sender: FDA-Public Use
  Company Number: PHBS2006JP13182

PATIENT
  Age: 45 Year
  Sex: Female
  Weight: 78 kg

DRUGS (3)
  1. DIOVAN [Suspect]
     Indication: HYPERTENSION
     Dosage: 80 MG, QD
     Route: 048
     Dates: start: 20050401, end: 20060825
  2. CONIEL [Concomitant]
     Indication: HYPERTENSION
     Dosage: 4 MG, UNK
     Dates: start: 20050401, end: 20060825
  3. EUGLUCON [Concomitant]
     Indication: DIABETES MELLITUS NON-INSULIN-DEPENDENT
     Dosage: 2.5 MG, UNK
     Dates: start: 20050401, end: 20060825

REACTIONS (5)
  - CAESAREAN SECTION [None]
  - DRUG EXPOSURE DURING PREGNANCY [None]
  - OLIGOHYDRAMNIOS [None]
  - PREGNANCY [None]
  - PREMATURE BABY [None]
